FAERS Safety Report 8605623-1 (Version None)
Quarter: 2012Q3

REPORT INFORMATION
  Report Type: 
  Country: None (occurrence: None)
  Receive Date: 20120807
  Receipt Date: 20120723
  Transmission Date: 20120928
  Serious: Yes (Other)
  Sender: FDA-Public Use
  Company Number: FK201202185

PATIENT
  Age: 67 Year
  Sex: Female

DRUGS (1)
  1. HEPARIN [Suspect]
     Indication: DRUG THERAPY

REACTIONS (2)
  - HYPERPHOSPHATAEMIA [None]
  - BURSITIS [None]
